FAERS Safety Report 9944787 (Version 1)
Quarter: 2014Q1

REPORT INFORMATION
  Report Type: Report from Study
  Country: US (occurrence: US)
  Receive Date: 20140303
  Receipt Date: 20140303
  Transmission Date: 20141002
  Serious: No
  Sender: FDA-Public Use
  Company Number: US-ABBVIE-13P-163-1056287-00

PATIENT
  Sex: Female
  Weight: 81.72 kg

DRUGS (9)
  1. HUMIRA [Suspect]
     Indication: CROHN^S DISEASE
     Dates: start: 201202, end: 201202
  2. HUMIRA [Suspect]
     Dosage: 2 WEEKS AFTER INTIAL DOSE
     Dates: start: 201202, end: 201202
  3. HUMIRA [Suspect]
     Dosage: 4 WEEKS AFTER INTIAL DOSE
     Dates: start: 201202, end: 201208
  4. IMURAN [Concomitant]
     Indication: CROHN^S DISEASE
  5. INVEGA [Concomitant]
     Indication: BIPOLAR DISORDER
  6. LAMICTAL [Concomitant]
     Indication: BIPOLAR DISORDER
  7. SEROQUEL [Concomitant]
     Indication: BIPOLAR DISORDER
  8. ZYPREXA [Concomitant]
     Indication: BIPOLAR DISORDER
  9. CLONIDINE [Concomitant]
     Indication: BIPOLAR DISORDER

REACTIONS (7)
  - Intestinal obstruction [Not Recovered/Not Resolved]
  - Crohn^s disease [Not Recovered/Not Resolved]
  - Crohn^s disease [Not Recovered/Not Resolved]
  - Abdominal pain [Not Recovered/Not Resolved]
  - Abdominal pain [Not Recovered/Not Resolved]
  - Abdominal distension [Not Recovered/Not Resolved]
  - Fatigue [Not Recovered/Not Resolved]
